FAERS Safety Report 7491961-5 (Version None)
Quarter: 2011Q2

REPORT INFORMATION
  Report Type: 
  Country: None (occurrence: None)
  Receive Date: 20110511
  Receipt Date: 20110506
  Transmission Date: 20111010
  Serious: Yes (Other)
  Sender: FDA-Public Use
  Company Number: 2011SP006560

PATIENT
  Age: 34 Year
  Sex: Male

DRUGS (5)
  1. VENLAFAXINE [Concomitant]
  2. GEODON [Suspect]
     Indication: PRODUCT USED FOR UNKNOWN INDICATION
  3. SAPHRIS [Suspect]
     Indication: SCHIZOAFFECTIVE DISORDER BIPOLAR TYPE
     Dosage: 10 MG, HS, QOD, SL
     Route: 060
     Dates: start: 20110113
  4. SAPHRIS [Suspect]
     Indication: SCHIZOAFFECTIVE DISORDER BIPOLAR TYPE
     Dosage: 10 MG, HS, QOD, SL
     Route: 060
     Dates: end: 20110203
  5. SEROQUEL [Concomitant]

REACTIONS (13)
  - PSYCHOMOTOR HYPERACTIVITY [None]
  - PARANOIA [None]
  - INITIAL INSOMNIA [None]
  - MIGRAINE [None]
  - MIDDLE INSOMNIA [None]
  - VOMITING [None]
  - DIZZINESS [None]
  - DISORIENTATION [None]
  - TACHYPHRENIA [None]
  - NAUSEA [None]
  - DRUG INTOLERANCE [None]
  - FATIGUE [None]
  - FEELING ABNORMAL [None]
